FAERS Safety Report 9608929 (Version 1)
Quarter: 2013Q4

REPORT INFORMATION
  Report Type: Spontaneous
  Country: US (occurrence: US)
  Receive Date: 20131009
  Receipt Date: 20131009
  Transmission Date: 20140711
  Serious: No
  Sender: FDA-Public Use
  Company Number: US-PFIZER INC-2013283455

PATIENT
  Age: 57 Year
  Sex: 0

DRUGS (1)
  1. CELEBREX [Suspect]
     Indication: MUSCULOSKELETAL DISCOMFORT
     Dosage: UNK

REACTIONS (1)
  - Therapeutic response unexpected [Unknown]
